FAERS Safety Report 18419379 (Version 1)
Quarter: 2020Q4

REPORT INFORMATION
  Report Type: Spontaneous
  Country: US (occurrence: US)
  Receive Date: 20201023
  Receipt Date: 20201023
  Transmission Date: 20210114
  Serious: No
  Sender: FDA-Public Use
  Company Number: US-MYLANLABS-2020M1087875

PATIENT
  Sex: Male
  Weight: 133 kg

DRUGS (1)
  1. METFORMIN [Suspect]
     Active Substance: METFORMIN HYDROCHLORIDE
     Indication: DIABETES MELLITUS
     Dosage: 1000 MILLIGRAM, BID (2 TABLETS TWICE DAILY)
     Route: 048
     Dates: start: 20201001

REACTIONS (1)
  - Drug screen false positive [Not Recovered/Not Resolved]
